FAERS Safety Report 7679579-2 (Version None)
Quarter: 2011Q3

REPORT INFORMATION
  Report Type: 
  Country: None (occurrence: None)
  Receive Date: 20110809
  Receipt Date: 20110725
  Transmission Date: 20111222
  Serious: Yes (Other)
  Sender: FDA-Public Use
  Company Number: 2011-222

PATIENT
  Age: 55 Year
  Sex: Male
  Weight: 90 kg

DRUGS (4)
  1. ACUPAN [Concomitant]
  2. OXYCONTIN [Concomitant]
  3. PRIALT [Suspect]
     Indication: RADICULAR PAIN
     Dosage: 0.21 UG, ONCE/HOUR, INTRATHECAL
     Route: 037
     Dates: start: 20110415, end: 20110506
  4. MORPHINE SULFATE [Suspect]
     Indication: NEURALGIA
     Dosage: ONCE/HOUR, INTRATHECAL
     Route: 037

REACTIONS (4)
  - SUICIDAL IDEATION [None]
  - PAIN [None]
  - SELF ESTEEM DECREASED [None]
  - DEPRESSION [None]
